FAERS Safety Report 4479123-7 (Version None)
Quarter: 2004Q3

REPORT INFORMATION
  Report Type: 
  Country: None (occurrence: None)
  Receive Date: 20040923
  Receipt Date: 20040722
  Transmission Date: 20050211
  Serious: Yes (Hospitalization)
  Sender: FDA-Public Use
  Company Number: 208010

PATIENT
  Age: 70 Year
  Sex: Male
  Weight: 70.3 kg

DRUGS (10)
  1. AVASTIN [Suspect]
     Indication: COLORECTAL CANCER METASTATIC
     Dosage: INTRAVENOUS
     Route: 042
     Dates: start: 20040629, end: 20040713
  2. FLUOROURACIL [Concomitant]
  3. LEUCOVORIN CALCIUM [Concomitant]
  4. COUMADIN [Concomitant]
  5. CIPROFLOXACIN [Concomitant]
  6. LASIX [Concomitant]
  7. ALBUTEROL (ALBUTEROL SULFATE, ALBUTEROL) [Concomitant]
  8. SEREVENT [Concomitant]
  9. VICODIN [Concomitant]
  10. SLEEPING PILLS (HYPNOTIC NOS) [Concomitant]

REACTIONS (2)
  - CHEST PAIN [None]
  - DYSPNOEA [None]
